FAERS Safety Report 15265856 (Version 4)
Quarter: 2018Q3

REPORT INFORMATION
  Report Type: Spontaneous
  Country: AR (occurrence: AR)
  Receive Date: 20180810
  Receipt Date: 20180928
  Transmission Date: 20181010
  Serious: Yes (Death, Other)
  Sender: FDA-Public Use
  Company Number: AR-PFIZER INC-2018320447

PATIENT
  Age: 74 Year
  Sex: Male

DRUGS (1)
  1. INLYTA [Suspect]
     Active Substance: AXITINIB
     Indication: RENAL CANCER
     Dosage: 3 MG, DAILY
     Dates: start: 20170929

REACTIONS (4)
  - Death [Fatal]
  - Gait inability [Unknown]
  - Malaise [Unknown]
  - Hypokinesia [Unknown]

NARRATIVE: CASE EVENT DATE: 20180730
